FAERS Safety Report 20940845 (Version 3)
Quarter: 2022Q3

REPORT INFORMATION
  Report Type: Report from Study
  Country: US (occurrence: US)
  Receive Date: 20220609
  Receipt Date: 20220725
  Transmission Date: 20221027
  Serious: Yes (Hospitalization)
  Sender: FDA-Public Use
  Company Number: US-NOVARTISTESTPH-NVSC2022US132859

PATIENT
  Sex: Female

DRUGS (1)
  1. ENTRESTO [Suspect]
     Active Substance: SACUBITRIL\VALSARTAN
     Indication: Product used for unknown indication
     Dosage: UNK UNK, BID (2 IN THE MORNING AND ONE AT NIGHT)
     Route: 048

REACTIONS (9)
  - Hypervolaemia [Unknown]
  - Chest pain [Unknown]
  - Hypertension [Unknown]
  - Device malfunction [Unknown]
  - Vomiting [Unknown]
  - Nausea [Unknown]
  - Heart rate increased [Unknown]
  - Decreased activity [Unknown]
  - Dizziness [Unknown]
